FAERS Safety Report 5650545-1 (Version None)
Quarter: 2008Q1

REPORT INFORMATION
  Report Type: 
  Country: None (occurrence: None)
  Receive Date: 20080304
  Receipt Date: 20080304
  Transmission Date: 20080703
  Serious: Yes (Other)
  Sender: FDA-Public Use
  Company Number: None

PATIENT
  Age: 47 Year
  Sex: Female
  Weight: 48.5349 kg

DRUGS (1)
  1. DAYTRANA [Suspect]
     Indication: ATTENTION DEFICIT/HYPERACTIVITY DISORDER
     Dosage: ONW PATCH DAILY ONCE TRANSDERMAL
     Route: 062
     Dates: start: 20070901, end: 20080303

REACTIONS (1)
  - PHARMACEUTICAL PRODUCT COMPLAINT [None]
